FAERS Safety Report 8530644 (Version 3)
Quarter: 2012Q4

REPORT INFORMATION
  Report Type: 
  Country: US (occurrence: US)
  Receive Date: 20120425
  Receipt Date: 20120829
  Transmission Date: 20130627
  Serious: Yes (Death)
  Sender: FDA-Public Use
  Company Number: US-INCYTE CORPORATION-2012IN000618

PATIENT
  Age: 71 None
  Sex: Female

DRUGS (13)
  1. JAKAFI [Suspect]
     Indication: MYELOFIBROSIS
     Dosage: 10 mg, bid
     Route: 048
     Dates: start: 20120307
  2. LEXAPRO [Concomitant]
     Dosage: 20 mg, UNK
  3. LEVOTHYROXINE [Concomitant]
     Dosage: 25 mcg, UNK
  4. ARIMIDEX [Concomitant]
     Dosage: 1 mg, UNK
  5. PREDNISONE [Concomitant]
     Dosage: 2.5 mg, UNK
  6. ALLOPURINOL [Concomitant]
     Dosage: 300 mg, UNK
  7. HYDROXYUREA [Concomitant]
     Dosage: 500 mg, UNK
  8. GLIPIZIDE [Concomitant]
     Dosage: 2.5 mg, UNK
  9. LANSOPRAZOLE [Concomitant]
     Dosage: 30 mg, UNK
  10. TOPROL-XL [Concomitant]
     Dosage: UNK
  11. K-DUR [Concomitant]
     Dosage: 10 mEq, UNK
  12. FUROSEMIDE [Concomitant]
     Dosage: 80 mg, UNK
  13. TADALAFIL [Concomitant]
     Dosage: 20 mg, UNK

REACTIONS (2)
  - Pulmonary hypertension [Fatal]
  - Renal failure [Fatal]
